FAERS Safety Report 10695477 (Version 1)
Quarter: 2014Q4

REPORT INFORMATION
  Report Type: Spontaneous
  Country: US (occurrence: None)
  Receive Date: 20141223
  Receipt Date: 20141223
  Transmission Date: 20150529
  Serious: No
  Sender: FDA-Public Use
  Company Number: 1000070518

PATIENT
  Sex: Female

DRUGS (16)
  1. OMEPRAZOLE. [Concomitant]
     Active Substance: OMEPRAZOLE
  2. MELOXICAM. [Concomitant]
     Active Substance: MELOXICAM
  3. ECOTRIN [Concomitant]
     Active Substance: ASPIRIN
  4. MULTIVITAMINS [Concomitant]
     Active Substance: VITAMINS
  5. CEREFOLIN (METHYLFOLATE, VITAMIN B12, VITAMIN B6, VITAMIN B2) (METHYLFOLATE, VITAMIN B12, VITAMIN B6, VITAMIN B2) [Concomitant]
  6. DONEPEZIL [Concomitant]
     Active Substance: DONEPEZIL
  7. LIPITOR [Concomitant]
     Active Substance: ATORVASTATIN CALCIUM
  8. BIOTIN [Concomitant]
     Active Substance: BIOTIN
  9. LINZESS [Suspect]
     Active Substance: LINACLOTIDE
     Dates: start: 201409
  10. METANX (CALCIUM MEFOLINATE W/PYRIDOXINE HYDROCHLORIDE) (CALCIUM MEFOLINATE W/PYRIDOXINE HYDROCHLORIDE) [Concomitant]
  11. AMLODIPINE [Concomitant]
     Active Substance: AMLODIPINE BESYLATE
  12. CALCIUM [Concomitant]
     Active Substance: CALCIUM
  13. NAMENDA XR (MEMANTINE HYDROCHLORIDE) [Concomitant]
  14. GLUCOSAMINE [Concomitant]
     Active Substance: GLUCOSAMINE
  15. FISH OIL [Concomitant]
     Active Substance: FISH OIL
  16. CQ10 (UBIQUINONE) [Concomitant]

REACTIONS (3)
  - Expired product administered [None]
  - Diarrhoea [None]
  - Drug ineffective [None]

NARRATIVE: CASE EVENT DATE: 201409
